FAERS Safety Report 21059374 (Version 3)
Quarter: 2022Q3

REPORT INFORMATION
  Report Type: Spontaneous
  Country: US (occurrence: US)
  Receive Date: 20220708
  Receipt Date: 20220801
  Transmission Date: 20221027
  Serious: Yes (Death, Life-Threatening, Hospitalization, Other)
  Sender: FDA-Public Use
  Company Number: US-VERTEX PHARMACEUTICALS-2022-004216

PATIENT
  Age: 33 Year
  Sex: Male

DRUGS (2)
  1. TRIKAFTA [Suspect]
     Active Substance: ELEXACAFTOR\IVACAFTOR\TEZACAFTOR
     Indication: Cystic fibrosis
     Dosage: FULL DOSING
     Route: 048
     Dates: start: 20210330, end: 2021
  2. TRIKAFTA [Suspect]
     Active Substance: ELEXACAFTOR\IVACAFTOR\TEZACAFTOR
     Dosage: FLIP AM AND PM DOSING
     Route: 048
     Dates: start: 202105, end: 20220123

REACTIONS (10)
  - Liver injury [Fatal]
  - Hepatorenal syndrome [Fatal]
  - Acute hepatic failure [Fatal]
  - Encephalopathy [Fatal]
  - Drug abuse [Fatal]
  - SARS-CoV-2 test positive [Fatal]
  - Renal failure [Fatal]
  - Anxiety [Unknown]
  - Splenomegaly [Unknown]
  - Hypoglycaemia [Recovered/Resolved]

NARRATIVE: CASE EVENT DATE: 20210526
